FAERS Safety Report 10511325 (Version 1)
Quarter: 2014Q4

REPORT INFORMATION
  Report Type: Spontaneous
  Country: GR (occurrence: GR)
  Receive Date: 20141010
  Receipt Date: 20141010
  Transmission Date: 20150528
  Serious: Yes (Hospitalization)
  Sender: FDA-Public Use
  Company Number: PHHY2014GR131742

PATIENT
  Sex: Male
  Weight: 3.35 kg

DRUGS (2)
  1. GENTAMICIN. [Suspect]
     Active Substance: GENTAMICIN
     Indication: PRODUCT USED FOR UNKNOWN INDICATION
     Route: 042
  2. AMPICILLIN [Suspect]
     Active Substance: AMPICILLIN
     Indication: PRODUCT USED FOR UNKNOWN INDICATION
     Route: 042

REACTIONS (10)
  - Thrombocytopenia [Unknown]
  - Bacteraemia [Unknown]
  - Inflammatory marker increased [Unknown]
  - Cholestasis [Unknown]
  - Klebsiella infection [Unknown]
  - General physical health deterioration [Unknown]
  - Disseminated intravascular coagulation [Unknown]
  - Ascites [Unknown]
  - Sepsis [Unknown]
  - Hyperbilirubinaemia [Unknown]
